FAERS Safety Report 5479286-0 (Version None)
Quarter: 2007Q4

REPORT INFORMATION
  Report Type: 
  Country: None (occurrence: None)
  Receive Date: 20071008
  Receipt Date: 20071002
  Transmission Date: 20080405
  Serious: Yes (Hospitalization)
  Sender: FDA-Public Use
  Company Number: SE-BRISTOL-MYERS SQUIBB COMPANY-13855655

PATIENT
  Age: 64 Year
  Sex: Male

DRUGS (9)
  1. BLINDED: APIXABAN [Suspect]
     Indication: THROMBOSIS PROPHYLAXIS
     Route: 048
     Dates: start: 20070209, end: 20070720
  2. BLINDED: PLACEBO [Suspect]
     Indication: THROMBOSIS PROPHYLAXIS
     Route: 048
     Dates: start: 20070209, end: 20070720
  3. INSULATARD [Concomitant]
     Dosage: 1 DOSAGE FORM = 20 E IN THE AM
  4. DAONIL [Concomitant]
  5. TROMBYL [Concomitant]
  6. TENORMIN [Concomitant]
  7. RAMIPRIL [Concomitant]
  8. SIMVASTIN [Concomitant]
  9. NITROMEX [Concomitant]

REACTIONS (1)
  - HEADACHE [None]
